FAERS Safety Report 7000701-5 (Version None)
Quarter: 2010Q3

REPORT INFORMATION
  Report Type: 
  Country: None (occurrence: None)
  Receive Date: 20100920
  Receipt Date: 20100204
  Transmission Date: 20110219
  Serious: No
  Sender: FDA-Public Use
  Company Number: US-ASTRAZENECA-2009SE14781

PATIENT
  Age: 350 Month
  Sex: Female
  Weight: 86.2 kg

DRUGS (8)
  1. SEROQUEL [Suspect]
     Indication: SCHIZOPHRENIA
     Dosage: 100 MG-200 MG/DAY
     Route: 048
     Dates: start: 20020101
  2. ABILIFY [Concomitant]
  3. RISPERDAL [Concomitant]
  4. ZYPREXA [Concomitant]
  5. LEXAPRO [Concomitant]
  6. SERZONE [Concomitant]
  7. BUSPAR [Concomitant]
  8. TRAZODONE HCL [Concomitant]

REACTIONS (2)
  - OBESITY [None]
  - TYPE 2 DIABETES MELLITUS [None]
